FAERS Safety Report 13523449 (Version 2)
Quarter: 2017Q3

REPORT INFORMATION
  Report Type: Spontaneous
  Country: US (occurrence: US)
  Receive Date: 20170508
  Receipt Date: 20170810
  Transmission Date: 20171127
  Serious: No
  Sender: FDA-Public Use
  Company Number: US-VIFOR (INTERNATIONAL) INC.-VIT-2017-03847

PATIENT
  Sex: Male

DRUGS (24)
  1. ASCORBIC ACID. [Concomitant]
     Active Substance: ASCORBIC ACID
  2. ZOLOFT [Concomitant]
     Active Substance: SERTRALINE HYDROCHLORIDE
  3. CALCITRIOL. [Concomitant]
     Active Substance: CALCITRIOL
  4. FISH OIL [Concomitant]
     Active Substance: FISH OIL
  5. FUROSEMIDE. [Concomitant]
     Active Substance: FUROSEMIDE
  6. MAGNESIUM [Concomitant]
     Active Substance: MAGNESIUM
  7. PROCRIT [Concomitant]
     Active Substance: ERYTHROPOIETIN
  8. TORASEMIDE [Concomitant]
     Active Substance: TORSEMIDE
  9. SODIUM BICARBONATE. [Concomitant]
     Active Substance: SODIUM BICARBONATE
  10. LEVOTHYROXINE SODIUM. [Concomitant]
     Active Substance: LEVOTHYROXINE SODIUM
  11. METOCLOPRAMIDE HYDROCHLORIDE. [Concomitant]
     Active Substance: METOCLOPRAMIDE HYDROCHLORIDE
  12. NIACIN. [Concomitant]
     Active Substance: NIACIN
  13. SUPER B COMPLEX [Concomitant]
     Active Substance: CYANOCOBALAMIN\DEXPANTHENOL\NIACINAMIDE\PYRIDOXINE HYDROCHLORIDE\RIBOFLAVIN 5^-PHOSPHATE SODIUM\THIAMINE HYDROCHLORIDE\VITAMIN B COMPLEX
  14. VELTASSA [Suspect]
     Active Substance: PATIROMER
     Indication: HYPERKALAEMIA
     Route: 048
     Dates: start: 20160825
  15. ASPIRIN-81 [Concomitant]
  16. CALCIUM [Concomitant]
     Active Substance: CALCIUM
  17. LISINOPRIL. [Concomitant]
     Active Substance: LISINOPRIL
  18. NOVOLOG [Concomitant]
     Active Substance: INSULIN ASPART
  19. SERTRALINE HYDROCHLORIDE. [Concomitant]
     Active Substance: SERTRALINE HYDROCHLORIDE
  20. SENNA ALEXANDRINA [Concomitant]
     Active Substance: SENNA LEAF
  21. TUMS [Concomitant]
     Active Substance: CALCIUM CARBONATE
  22. ALLOPURINOL. [Concomitant]
     Active Substance: ALLOPURINOL
  23. SIMVASTATIN. [Concomitant]
     Active Substance: SIMVASTATIN
  24. FERROUS SULFATE. [Concomitant]
     Active Substance: FERROUS SULFATE

REACTIONS (6)
  - Drug dose omission [Unknown]
  - Head discomfort [Unknown]
  - Nausea [Unknown]
  - Oropharyngeal pain [Unknown]
  - Malaise [Unknown]
  - Vomiting [Unknown]

NARRATIVE: CASE EVENT DATE: 2017
